FAERS Safety Report 4354392-2 (Version None)
Quarter: 2004Q2

REPORT INFORMATION
  Report Type: 
  Country: None (occurrence: None)
  Receive Date: 20040503
  Receipt Date: 20040422
  Transmission Date: 20050107
  Serious: Yes (Hospitalization)
  Sender: FDA-Public Use
  Company Number: 200411423GDS

PATIENT
  Age: 24 Year
  Sex: Male

DRUGS (3)
  1. AVELON (MOXIFLOXACIN HYDROCHLORIDE) [Suspect]
     Indication: BRONCHITIS
     Dosage: 400 MG, TOTAL DAILY, INTRAVENOUS
     Route: 042
     Dates: start: 20040416
  2. INHALED BRONCHODILATORS [Concomitant]
  3. ORAL STEROIDS [Concomitant]

REACTIONS (1)
  - MANIA [None]
